FAERS Safety Report 7987151-X (Version None)
Quarter: 2011Q4

REPORT INFORMATION
  Report Type: 
  Country: None (occurrence: None)
  Receive Date: 20111216
  Receipt Date: 20110324
  Transmission Date: 20120403
  Serious: No
  Sender: FDA-Public Use
  Company Number: US-BRISTOL-MYERS SQUIBB COMPANY-15633027

PATIENT
  Sex: Male

DRUGS (2)
  1. ABILIFY [Suspect]
     Indication: PSYCHOTIC DISORDER
     Dosage: THERAPY STARTED:ABOUT 2 WEEKS AGO
  2. ABILIFY [Suspect]
     Indication: DEPRESSION
     Dosage: THERAPY STARTED:ABOUT 2 WEEKS AGO

REACTIONS (1)
  - EXTRAPYRAMIDAL DISORDER [None]
